FAERS Safety Report 6824843-X (Version None)
Quarter: 2010Q3

REPORT INFORMATION
  Report Type: 
  Country: None (occurrence: None)
  Receive Date: 20100708
  Receipt Date: 20061127
  Transmission Date: 20110219
  Serious: No
  Sender: FDA-Public Use
  Company Number: US-PFIZER INC-2006148859

PATIENT
  Sex: Female
  Weight: 58.97 kg

DRUGS (6)
  1. CHANTIX [Suspect]
     Indication: EX-TOBACCO USER
     Dates: start: 20061101
  2. CLONAZEPAM [Concomitant]
  3. ATENOLOL [Concomitant]
  4. OXYCODONE HCL [Concomitant]
  5. ALL OTHER THERAPEUTIC PRODUCTS [Concomitant]
  6. VITAMINS [Concomitant]

REACTIONS (1)
  - VOMITING [None]
